FAERS Safety Report 8433375-7 (Version None)
Quarter: 2012Q2

REPORT INFORMATION
  Report Type: 
  Country: None (occurrence: None)
  Receive Date: 20120613
  Receipt Date: 20120607
  Transmission Date: 20120825
  Serious: Yes (Hospitalization, Other)
  Sender: FDA-Public Use
  Company Number: US-MERCK-0810USA04874

PATIENT
  Age: 69 Year
  Sex: Female
  Weight: 80 kg

DRUGS (3)
  1. FOSAMAX [Suspect]
     Indication: OSTEOPOROSIS
     Route: 048
     Dates: start: 20011001, end: 20060501
  2. FOSAMAX [Suspect]
     Route: 048
     Dates: start: 20001001, end: 20010901
  3. FOSAMAX [Suspect]
     Route: 048
     Dates: start: 19960301, end: 19990101

REACTIONS (35)
  - CYST [None]
  - ATRIAL FIBRILLATION [None]
  - SQUAMOUS CELL CARCINOMA [None]
  - DEMENTIA ALZHEIMER'S TYPE [None]
  - TIBIA FRACTURE [None]
  - KNEE ARTHROPLASTY [None]
  - DYSPNOEA EXERTIONAL [None]
  - RESTLESS LEGS SYNDROME [None]
  - SOMNOLENCE [None]
  - BASAL CELL CARCINOMA [None]
  - SKIN CANCER [None]
  - NORMAL PRESSURE HYDROCEPHALUS [None]
  - FISTULA [None]
  - DEPRESSION [None]
  - ABSCESS [None]
  - FALL [None]
  - PARKINSONISM [None]
  - NASAL DISORDER [None]
  - ARTHROPATHY [None]
  - SINUS DISORDER [None]
  - BONE DENSITY DECREASED [None]
  - PYREXIA [None]
  - ABSCESS ORAL [None]
  - ABDOMINAL HERNIA [None]
  - LIMB INJURY [None]
  - ADVERSE DRUG REACTION [None]
  - ANXIETY [None]
  - OSTEONECROSIS OF JAW [None]
  - INSOMNIA [None]
  - HYPERCHOLESTEROLAEMIA [None]
  - WEIGHT INCREASED [None]
  - TREMOR [None]
  - ORAL DISCOMFORT [None]
  - AMNESIA [None]
  - BRONCHITIS [None]
